FAERS Safety Report 24850086 (Version 1)
Quarter: 2025Q1

REPORT INFORMATION
  Report Type: Spontaneous
  Country: US (occurrence: US)
  Receive Date: 20250116
  Receipt Date: 20250116
  Transmission Date: 20250408
  Serious: No
  Sender: INCYTE
  Company Number: US-INCYTE CORPORATION-2025IN000191

PATIENT

DRUGS (1)
  1. JAKAFI [Suspect]
     Active Substance: RUXOLITINIB
     Dosage: 10 MILLIGRAM, BID
     Route: 048

REACTIONS (4)
  - Bone pain [Unknown]
  - Myalgia [Unknown]
  - Back pain [Unknown]
  - Infection [Unknown]
